FAERS Safety Report 10168013 (Version 1)
Quarter: 2014Q2

REPORT INFORMATION
  Report Type: Spontaneous
  Country: ES (occurrence: ES)
  Receive Date: 20140512
  Receipt Date: 20140512
  Transmission Date: 20141212
  Serious: Yes (Other)
  Sender: FDA-Public Use
  Company Number: ES-WATSON-2014-09730

PATIENT
  Age: 34 Year
  Sex: Female

DRUGS (1)
  1. CHLOROQUINE (UNKNOWN) [Suspect]
     Indication: SYSTEMIC LUPUS ERYTHEMATOSUS
     Dosage: 3 MG/KG, DAILY
     Route: 048

REACTIONS (1)
  - Acquired pigmented retinopathy [Unknown]
